FAERS Safety Report 10668007 (Version 2)
Quarter: 2014Q4

REPORT INFORMATION
  Report Type: Spontaneous
  Country: US (occurrence: US)
  Receive Date: 20141222
  Receipt Date: 20141222
  Transmission Date: 20150529
  Serious: No
  Sender: FDA-Public Use
  Company Number: US-GLAXOSMITHKLINE-A1048260A

PATIENT

DRUGS (2)
  1. SORIATANE [Suspect]
     Active Substance: ACITRETIN
     Indication: PSORIASIS
     Dosage: 25 MG UNKNOWN DOSING
     Route: 065
     Dates: start: 20101130
  2. SORIATANE [Suspect]
     Active Substance: ACITRETIN
     Indication: SKIN LESION

REACTIONS (1)
  - Therapeutic response unexpected [Unknown]
